FAERS Safety Report 8759877 (Version 1)
Quarter: 2012Q4

REPORT INFORMATION
  Report Type: 
  Country: VN (occurrence: VN)
  Receive Date: 20120829
  Receipt Date: 20120829
  Transmission Date: 20130627
  Serious: Yes (Hospitalization)
  Sender: FDA-Public Use
  Company Number: VN-ROCHE-1105216

PATIENT
  Age: 11 Year
  Sex: Female

DRUGS (6)
  1. ACTEMRA [Suspect]
     Indication: JUVENILE ARTHRITIS
     Route: 042
     Dates: start: 201201, end: 201207
  2. METHOTREXATE [Suspect]
     Indication: JUVENILE ARTHRITIS
     Route: 048
     Dates: start: 201108, end: 201207
  3. ULTRACET [Concomitant]
     Indication: ANALGESIC THERAPY
     Dosage: when having pain
     Route: 048
  4. EFFERALGAN [Concomitant]
     Indication: ANALGESIC THERAPY
     Dosage: when having pain
     Route: 048
  5. PREDNISOLONE [Concomitant]
     Indication: JUVENILE ARTHRITIS
     Route: 048
     Dates: start: 201108
  6. PREDNISOLONE [Concomitant]
     Route: 065

REACTIONS (1)
  - Histiocytosis haematophagic [Recovering/Resolving]
